FAERS Safety Report 23041650 (Version 4)
Quarter: 2023Q4

REPORT INFORMATION
  Report Type: Report from Study
  Country: US (occurrence: US)
  Receive Date: 20231007
  Receipt Date: 20231221
  Transmission Date: 20240109
  Serious: Yes (Hospitalization, Other)
  Sender: FDA-Public Use
  Company Number: US-002147023-NVSC2023US215975

PATIENT
  Age: 63 Year
  Sex: Female
  Weight: 111 kg

DRUGS (2)
  1. ENTRESTO [Suspect]
     Active Substance: SACUBITRIL\VALSARTAN
     Indication: Cardiac failure congestive
     Dosage: 2 DOSAGE FORM, BID (49/51 MG)
     Route: 048
     Dates: start: 202308
  2. ENTRESTO [Suspect]
     Active Substance: SACUBITRIL\VALSARTAN
     Dosage: 1 DOSAGE FORM, BID (97/103 MG)
     Route: 048
     Dates: start: 20231023, end: 20231112

REACTIONS (6)
  - Cataract [Unknown]
  - Vision blurred [Unknown]
  - Dyspnoea [Unknown]
  - Fatigue [Unknown]
  - Hyperkalaemia [Unknown]
  - Asthenia [Unknown]

NARRATIVE: CASE EVENT DATE: 20231101
